FAERS Safety Report 6518882-6 (Version None)
Quarter: 2009Q4

REPORT INFORMATION
  Report Type: 
  Country: None (occurrence: None)
  Receive Date: 20091228
  Receipt Date: 20091215
  Transmission Date: 20100525
  Serious: Yes (Disabling)
  Sender: FDA-Public Use
  Company Number: PHHY2009FI49893

PATIENT
  Sex: Male

DRUGS (7)
  1. ZOMETA [Suspect]
     Indication: MULTIPLE MYELOMA
     Dosage: 4MG AT INTERVALS OF 1-2 MONTHS
     Route: 042
     Dates: start: 20080419, end: 20090814
  2. THALIDOMIDE [Concomitant]
     Indication: MULTIPLE MYELOMA
     Dosage: 50 MG PER DAY
     Dates: start: 20080424
  3. KALCIPOS-D [Concomitant]
     Indication: SUPPLEMENTATION THERAPY
     Dosage: UNK, BID
     Dates: start: 20080401
  4. COTRIM [Concomitant]
     Indication: PROPHYLAXIS
     Dosage: 1X1 THREE TIMES A WEEK
     Dates: start: 20080401
  5. PRIMASPAN [Concomitant]
     Dosage: 100 MG PER DAY
     Dates: start: 20080401
  6. DEXAMETASON [Concomitant]
     Indication: MULTIPLE MYELOMA
     Dosage: 15 MG A DAY DURING FOUR DAYS EVERY MONTH
     Dates: start: 20080419
  7. EXELON [Concomitant]
     Indication: DEMENTIA ALZHEIMER'S TYPE
     Dosage: UNK, BID

REACTIONS (5)
  - BONE DISORDER [None]
  - OSTEOLYSIS [None]
  - OSTEONECROSIS [None]
  - TOOTH ABSCESS [None]
  - TOOTH LOSS [None]
